FAERS Safety Report 14056732 (Version 2)
Quarter: 2017Q4

REPORT INFORMATION
  Report Type: Spontaneous
  Country: CA (occurrence: CA)
  Receive Date: 20171006
  Receipt Date: 20171221
  Transmission Date: 20180321
  Serious: Yes (Other)
  Sender: FDA-Public Use
  Company Number: CA-REGENERON PHARMACEUTICALS, INC.-2017-23271

PATIENT

DRUGS (3)
  1. EYLEA [Suspect]
     Active Substance: AFLIBERCEPT
     Dosage: LEFT EYE. DOSE AND FREQUENCY NOT REPORTED. TOTAL NUMBER OF DOSES RECEIVED NOT PROVIDED.
     Route: 031
     Dates: start: 20170918, end: 20170918
  2. EYLEA [Suspect]
     Active Substance: AFLIBERCEPT
     Indication: NEOVASCULAR AGE-RELATED MACULAR DEGENERATION
     Dosage: LEFT EYE. DOSE AND FREQUENCY NOT REPORTED. TOTAL NUMBER OF DOSES RECEIVED NOT PROVIDED.
     Route: 031
     Dates: start: 20170918, end: 20170918
  3. DEXAMETHASONE. [Concomitant]
     Active Substance: DEXAMETHASONE
     Indication: PRODUCT USED FOR UNKNOWN INDICATION

REACTIONS (2)
  - Blindness unilateral [Unknown]
  - Endophthalmitis [Unknown]

NARRATIVE: CASE EVENT DATE: 201709
